FAERS Safety Report 20278571 (Version 1)
Quarter: 2022Q1

REPORT INFORMATION
  Report Type: Spontaneous
  Country: FR (occurrence: FR)
  Receive Date: 20220103
  Receipt Date: 20220103
  Transmission Date: 20220424
  Serious: Yes (Hospitalization, Other)
  Sender: FDA-Public Use
  Company Number: None

PATIENT
  Age: 48 Year
  Sex: Male
  Weight: 98 kg

DRUGS (5)
  1. NIVOLUMAB [Suspect]
     Active Substance: NIVOLUMAB
     Indication: Metastatic malignant melanoma
     Dosage: 1MG/KG TOUTES LES 3 SEMAINES
     Route: 041
     Dates: start: 20210518, end: 20210719
  2. NIVOLUMAB [Suspect]
     Active Substance: NIVOLUMAB
     Dosage: 480 MG TOUTES LES 4 SEMAINES
     Route: 041
     Dates: start: 20210120, end: 20210414
  3. IPILIMUMAB [Suspect]
     Active Substance: IPILIMUMAB
     Indication: Metastatic malignant melanoma
     Dosage: 3 MG/KG TOUTES LES 3 SEMAINES
     Route: 041
     Dates: start: 20210518, end: 20210719
  4. BINIMETINIB [Suspect]
     Active Substance: BINIMETINIB
     Indication: Metastatic malignant melanoma
     Dosage: 90 MG/J
     Route: 048
     Dates: start: 20210814, end: 20210902
  5. ENCORAFENIB [Suspect]
     Active Substance: ENCORAFENIB
     Indication: Metastatic malignant melanoma
     Dosage: 450 MG/J
     Route: 048
     Dates: start: 20210814, end: 20210902

REACTIONS (4)
  - Primary hyperaldosteronism [Not Recovered/Not Resolved]
  - Hypopituitarism [Not Recovered/Not Resolved]
  - Iridocyclitis [Not Recovered/Not Resolved]
  - Optic neuritis [Not Recovered/Not Resolved]

NARRATIVE: CASE EVENT DATE: 20210101
